FAERS Safety Report 20345858 (Version 1)
Quarter: 2022Q1

REPORT INFORMATION
  Report Type: Spontaneous
  Country: US (occurrence: None)
  Receive Date: 20220118
  Receipt Date: 20220118
  Transmission Date: 20220423
  Serious: No
  Sender: FDA-Public Use
  Company Number: 2022A008725

PATIENT
  Sex: Male

DRUGS (7)
  1. BUDESONIDE\FORMOTEROL [Suspect]
     Active Substance: BUDESONIDE\FORMOTEROL
     Indication: Viral upper respiratory tract infection
     Dosage: 160/4.5 2 PUFFS BID
     Route: 055
     Dates: start: 20220104
  2. BUDESONIDE\FORMOTEROL [Suspect]
     Active Substance: BUDESONIDE\FORMOTEROL
     Indication: COVID-19
     Dosage: 160/4.5 2 PUFFS BID
     Route: 055
     Dates: start: 20220104
  3. BUDESONIDE\FORMOTEROL [Suspect]
     Active Substance: BUDESONIDE\FORMOTEROL
     Indication: Pneumonia
     Dosage: 160/4.5 2 PUFFS BID
     Route: 055
     Dates: start: 20220104
  4. BUDESONIDE\FORMOTEROL [Suspect]
     Active Substance: BUDESONIDE\FORMOTEROL
     Indication: Viral upper respiratory tract infection
     Dosage: UNKNOWN UNKNOWN
     Route: 055
  5. BUDESONIDE\FORMOTEROL [Suspect]
     Active Substance: BUDESONIDE\FORMOTEROL
     Indication: COVID-19
     Dosage: UNKNOWN UNKNOWN
     Route: 055
  6. BUDESONIDE\FORMOTEROL [Suspect]
     Active Substance: BUDESONIDE\FORMOTEROL
     Indication: Pneumonia
     Dosage: UNKNOWN UNKNOWN
     Route: 055
  7. ALBUTEROL [Concomitant]
     Active Substance: ALBUTEROL

REACTIONS (5)
  - Cough [Unknown]
  - Speech disorder [Unknown]
  - Product taste abnormal [Unknown]
  - Wrong technique in device usage process [Unknown]
  - Off label use [Unknown]
